FAERS Safety Report 6915411-X (Version None)
Quarter: 2010Q3

REPORT INFORMATION
  Report Type: 
  Country: None (occurrence: None)
  Receive Date: 20100809
  Receipt Date: 20100416
  Transmission Date: 20110219
  Serious: No
  Sender: FDA-Public Use
  Company Number: US-ABBOTT-10P-163-0639863-00

PATIENT
  Sex: Male
  Weight: 93.524 kg

DRUGS (2)
  1. DEPAKOTE ER [Suspect]
     Indication: BIPOLAR DISORDER
     Dates: start: 20030101
  2. ZYPREXA [Concomitant]
     Indication: BIPOLAR DISORDER

REACTIONS (3)
  - ARTHRALGIA [None]
  - GOUT [None]
  - HYPERURICAEMIA [None]
